FAERS Safety Report 8995061 (Version 2)
Quarter: 2013Q1

REPORT INFORMATION
  Report Type: Spontaneous
  Country: JP (occurrence: JP)
  Receive Date: 20130102
  Receipt Date: 20130124
  Transmission Date: 20140127
  Serious: Yes (Other)
  Sender: FDA-Public Use
  Company Number: JP-PFIZER INC-2012330974

PATIENT
  Age: 67 Year
  Sex: Female

DRUGS (5)
  1. NOVASTAN [Suspect]
     Dosage: UNK
     Route: 065
  2. CILOSTAZOL [Suspect]
     Indication: ANTIPLATELET THERAPY
     Dosage: 200 MG, 2X/DAY
     Route: 065
  3. CLOPIDOGREL BISULFATE [Suspect]
     Indication: ANTIPLATELET THERAPY
     Dosage: 75 MG, UNK
     Route: 065
  4. ASPIRIN [Suspect]
     Indication: ANTIPLATELET THERAPY
     Dosage: 100 MG, UNK
     Route: 065
  5. HEPARIN [Suspect]
     Dosage: UNK
     Route: 065

REACTIONS (1)
  - Pharyngeal haematoma [Recovering/Resolving]
